FAERS Safety Report 18020259 (Version 1)
Quarter: 2020Q3

REPORT INFORMATION
  Report Type: Spontaneous
  Country: US (occurrence: US)
  Receive Date: 20200714
  Receipt Date: 20200714
  Transmission Date: 20201103
  Serious: No
  Sender: FDA-Public Use
  Company Number: None

PATIENT
  Age: 28 Year
  Sex: Male
  Weight: 87.75 kg

DRUGS (5)
  1. POTASSIUM [Concomitant]
     Active Substance: POTASSIUM
  2. MAGNESIUM [Concomitant]
     Active Substance: MAGNESIUM
  3. MONTELUKAST SODIUM. [Suspect]
     Active Substance: MONTELUKAST SODIUM
     Indication: ASTHMA
     Dates: start: 20200119, end: 20200623
  4. SYMBICORT [Concomitant]
     Active Substance: BUDESONIDE\FORMOTEROL FUMARATE DIHYDRATE
  5. ALBUTEROL. [Concomitant]
     Active Substance: ALBUTEROL

REACTIONS (8)
  - Aggression [None]
  - Abnormal behaviour [None]
  - Mood swings [None]
  - Limb injury [None]
  - Frustration tolerance decreased [None]
  - Alcohol use [None]
  - Agitation [None]
  - Irritability [None]

NARRATIVE: CASE EVENT DATE: 20200623
